FAERS Safety Report 24303947 (Version 2)
Quarter: 2024Q4

REPORT INFORMATION
  Report Type: Report from Study
  Country: CA (occurrence: CA)
  Receive Date: 20240910
  Receipt Date: 20241007
  Transmission Date: 20250114
  Serious: Yes (Hospitalization, Other)
  Sender: GLAXOSMITHKLINE
  Company Number: CA-GLAXOSMITHKLINE-CA2022153696

PATIENT

DRUGS (1)
  1. MEPOLIZUMAB [Suspect]
     Active Substance: MEPOLIZUMAB
     Indication: Asthma
     Dosage: 100 MG, Q4W
     Route: 058
     Dates: start: 20221005, end: 20240906

REACTIONS (10)
  - Bacterial infection [Unknown]
  - Dyspnoea [Unknown]
  - Pyrexia [Unknown]
  - Malaise [Unknown]
  - Bronchopulmonary aspergillosis allergic [Unknown]
  - Oral candidiasis [Unknown]
  - Wheezing [Unknown]
  - Asthma [Unknown]
  - Pain [Unknown]
  - Blood immunoglobulin A increased [Unknown]
